FAERS Safety Report 5012306-6 (Version None)
Quarter: 2006Q2

REPORT INFORMATION
  Report Type: 
  Country: None (occurrence: None)
  Receive Date: 20060410
  Receipt Date: 20050523
  Transmission Date: 20061013
  Serious: Yes (Hospitalization)
  Sender: FDA-Public Use
  Company Number: 05P-163-0301296-00

PATIENT
  Age: 65 Year
  Sex: Male

DRUGS (2)
  1. DEPAKOTE [Suspect]
     Dates: start: 20030101, end: 20050501
  2. ZOCOR [Concomitant]

REACTIONS (2)
  - HYPERAMMONAEMIA [None]
  - MENTAL STATUS CHANGES [None]
